FAERS Safety Report 6165937-4 (Version None)
Quarter: 2009Q2

REPORT INFORMATION
  Report Type: 
  Country: None (occurrence: None)
  Receive Date: 20090422
  Receipt Date: 20090408
  Transmission Date: 20091009
  Serious: Yes (Hospitalization)
  Sender: FDA-Public Use
  Company Number: 232864K08USA

PATIENT
  Age: 42 Year
  Sex: Female
  Weight: 68 kg

DRUGS (8)
  1. REBIF [Suspect]
     Indication: MULTIPLE SCLEROSIS
     Dosage: 44 MCG, 3 IN 1 WEEKS, SUBCUTENOUS
     Route: 058
     Dates: start: 20080827
  2. GABAPENTIN [Concomitant]
  3. DIVALPROEX EXTENDED RELEASE (VALPROAE SEMISODIUM) [Concomitant]
  4. CYMBALTA [Concomitant]
  5. AMANTADINE HCL [Concomitant]
  6. BUSPIRONE HCL [Concomitant]
  7. TIZANIDINE HCL [Concomitant]
  8. DIPHENHYDRAMINE HCL [Concomitant]

REACTIONS (8)
  - CONDITION AGGRAVATED [None]
  - GASTRIC DISORDER [None]
  - GASTRIC ULCER [None]
  - MULTIPLE SCLEROSIS [None]
  - NASOPHARYNGITIS [None]
  - OESOPHAGEAL ULCER [None]
  - SINUSITIS [None]
  - WEIGHT DECREASED [None]
